FAERS Safety Report 9303766 (Version 4)
Quarter: 2013Q3

REPORT INFORMATION
  Report Type: Spontaneous
  Country: US (occurrence: None)
  Receive Date: 20130122
  Receipt Date: 20130815
  Transmission Date: 20140515
  Serious: Yes (Hospitalization, Other)
  Sender: FDA-Public Use
  Company Number: ADR-2012-02191

PATIENT
  Sex: Female

DRUGS (4)
  1. BACLOFEN INTRATHECAL [Suspect]
     Indication: PAIN
  2. BUPIVACAINE [Concomitant]
  3. FENTANYL [Concomitant]
  4. PRIALT [Concomitant]

REACTIONS (17)
  - Pain [None]
  - Fall [None]
  - Back injury [None]
  - Convulsion [None]
  - Drug ineffective [None]
  - Treatment noncompliance [None]
  - Pump reservoir issue [None]
  - Drug withdrawal syndrome [None]
  - Syncope [None]
  - Stress [None]
  - Blood pressure decreased [None]
  - Grand mal convulsion [None]
  - Pain [None]
  - No therapeutic response [None]
  - Loss of consciousness [None]
  - Syncope [None]
  - Performance status decreased [None]
